FAERS Safety Report 24038724 (Version 7)
Quarter: 2025Q1

REPORT INFORMATION
  Report Type: Report from Study
  Country: CO (occurrence: CO)
  Receive Date: 20240702
  Receipt Date: 20250109
  Transmission Date: 20250408
  Serious: Yes (Hospitalization, Other)
  Sender: ROCHE
  Company Number: CO-002147023-NVSC2024CO085365

PATIENT
  Age: 78 Year
  Sex: Male
  Weight: 61 kg

DRUGS (9)
  1. XOLAIR [Suspect]
     Active Substance: OMALIZUMAB
     Indication: Asthma
     Dosage: 450 MG, QMO (3 DOSES)
     Route: 050
     Dates: start: 20200912
  2. XOLAIR [Suspect]
     Active Substance: OMALIZUMAB
     Route: 050
  3. XOLAIR [Suspect]
     Active Substance: OMALIZUMAB
     Route: 050
     Dates: start: 20200919, end: 202404
  4. XOLAIR [Suspect]
     Active Substance: OMALIZUMAB
     Route: 058
     Dates: start: 202405
  5. XOLAIR [Suspect]
     Active Substance: OMALIZUMAB
     Dosage: 450 MG (450 MG / 3 EVERY 15 DAYS)
     Route: 058
     Dates: start: 2018
  6. METOPROLOL [Suspect]
     Active Substance: METOPROLOL
     Indication: Product used for unknown indication
     Dosage: 1 DOSAGE FORM, BID
     Route: 048
     Dates: start: 2015
  7. LEVOTHYROXINE [Concomitant]
     Active Substance: LEVOTHYROXINE
     Indication: Product used for unknown indication
     Dosage: 1 DOSAGE FORM, QD
     Route: 065
  8. ATORVASTATIN [Concomitant]
     Active Substance: ATORVASTATIN
     Indication: Product used for unknown indication
     Dosage: 1 DOSAGE FORM QD (IN THE AFTERNOON HOURS)
     Route: 065
  9. ASPIRIN [Concomitant]
     Active Substance: ASPIRIN
     Indication: Product used for unknown indication
     Dosage: 1 DOSAGE FORM QD (IN THE AFTERNOON HOURS)
     Route: 065

REACTIONS (12)
  - Illness [Unknown]
  - Malaise [Unknown]
  - Pneumonia [Unknown]
  - Hernia [Unknown]
  - Inappropriate schedule of product administration [Unknown]
  - Gait disturbance [Unknown]
  - Fatigue [Unknown]
  - Product supply issue [Unknown]
  - Weight decreased [Recovered/Resolved]
  - Weight increased [Recovered/Resolved]
  - Bone marrow disorder [Unknown]
  - Infarction [Unknown]
